FAERS Safety Report 5653569-3 (Version None)
Quarter: 2008Q1

REPORT INFORMATION
  Report Type: 
  Country: None (occurrence: None)
  Receive Date: 20080306
  Receipt Date: 20080225
  Transmission Date: 20080703
  Serious: Yes (Hospitalization)
  Sender: FDA-Public Use
  Company Number: FR-JNJFOC-20080205760

PATIENT
  Age: 12 Year
  Sex: Male

DRUGS (2)
  1. OFLOCET [Suspect]
     Indication: INJURY
     Route: 048
  2. BACTRIM [Suspect]
     Indication: INJURY
     Route: 048

REACTIONS (1)
  - DRUG RASH WITH EOSINOPHILIA AND SYSTEMIC SYMPTOMS [None]
